FAERS Safety Report 7208337-8 (Version None)
Quarter: 2011Q1

REPORT INFORMATION
  Report Type: 
  Country: None (occurrence: None)
  Receive Date: 20110104
  Receipt Date: 20101229
  Transmission Date: 20110831
  Serious: Yes (Hospitalization, Other)
  Sender: FDA-Public Use
  Company Number: RU-PFIZER INC-2010117278

PATIENT
  Sex: Male
  Weight: 96 kg

DRUGS (34)
  1. BLINDED THERAPY [Suspect]
     Indication: ACUTE CORONARY SYNDROME
     Dosage: 2.5 MG OR 5 MG OR PLACEBO
     Route: 048
     Dates: start: 20100315, end: 20100907
  2. ISOSORBIDE MONONITRATE [Concomitant]
  3. SPIRONOLACTONE [Concomitant]
  4. BISOPROLOL [Concomitant]
  5. GLUCOSE [Concomitant]
  6. CLOPIDOGREL [Concomitant]
     Indication: ACUTE CORONARY SYNDROME
     Dosage: UNK
     Dates: end: 20100318
  7. OMEPRAZOLE [Suspect]
  8. LISINOPRIL [Concomitant]
  9. SIMVASTATIN [Concomitant]
  10. PERINDOPRIL [Concomitant]
  11. CLOPIDOGREL [Concomitant]
     Dosage: UNK
     Dates: start: 20100323, end: 20100331
  12. ACETYLSALICYLIC ACID [Concomitant]
     Indication: ACUTE CORONARY SYNDROME
     Dosage: UNK
     Dates: end: 20100429
  13. ACETYLSALICYLIC ACID [Concomitant]
     Dosage: UNK
     Dates: start: 20100430
  14. MORPHINE HYDROCHLORIDE [Concomitant]
  15. METOPROLOL [Concomitant]
  16. ISOSORBIDE DINITRATE [Concomitant]
  17. TRIMEPERIDINE [Concomitant]
  18. METAMIZOLE SODIUM [Concomitant]
  19. HYDROCHLOROTHIAZIDE [Concomitant]
  20. ACETYLSALICYLIC ACID [Concomitant]
     Dosage: UNK
     Dates: end: 20100308
  21. FUROSEMIDE [Concomitant]
  22. HEPARIN [Concomitant]
  23. ATORVASTATIN CALCIUM [Suspect]
  24. MAGNESIUM ASPARTATE [Concomitant]
  25. SODIUM CHLORIDE [Concomitant]
  26. AMIODARONE [Suspect]
  27. DILTIAZEM [Concomitant]
  28. HYLAK [Concomitant]
     Dosage: UNK
     Dates: start: 20101113, end: 20101113
  29. MAGNESIUM SULFATE [Concomitant]
  30. PHENAZEPAM [Concomitant]
  31. BETAXOLOL [Concomitant]
  32. POTASSIUM CHLORIDE [Concomitant]
  33. CAPTOPRIL [Concomitant]
  34. ENALAPRIL [Concomitant]

REACTIONS (4)
  - HEPATIC ENZYME INCREASED [None]
  - JAUNDICE CHOLESTATIC [None]
  - PANCREATIC MASS [None]
  - GASTRITIS EROSIVE [None]
